FAERS Safety Report 9262786 (Version 1)
Quarter: 2013Q2

REPORT INFORMATION
  Report Type: Spontaneous
  Country: AU (occurrence: None)
  Receive Date: 20130426
  Receipt Date: 20130426
  Transmission Date: 20140414
  Serious: Yes (Hospitalization)
  Sender: FDA-Public Use
  Company Number: VAL_02303_2013

PATIENT
  Sex: Male
  Weight: 75 kg

DRUGS (9)
  1. METOPROLOL (METOPROLOL-METOPROLOL TARTRATE) [Suspect]
     Indication: SINUS TACHYCARDIA
     Dates: start: 20130117
  2. CLOZARIL [Suspect]
     Indication: SCHIZOPHRENIA, PARANOID TYPE
  3. CLOZARIL [Suspect]
  4. TELMISARTAN (UNKNOWN) [Concomitant]
  5. CHOLECALCIFEROL (UNKNOWN) [Concomitant]
  6. ATORVASTATIN (UNKNOWN) [Concomitant]
  7. DIAZEPAM (UNKNOWN) [Concomitant]
  8. TEMAZEPAM (UNKNOWN) [Concomitant]
  9. OLANZAPINE (UNKNOWN) [Concomitant]

REACTIONS (7)
  - No therapeutic response [None]
  - Tachycardia [None]
  - Blood chloride [None]
  - Blood iron decreased [None]
  - Blood magnesium increased [None]
  - Cardiotoxicity [None]
  - Hypotension [None]
